FAERS Safety Report 5405266-7 (Version None)
Quarter: 2007Q3

REPORT INFORMATION
  Report Type: 
  Country: None (occurrence: None)
  Receive Date: 20070803
  Receipt Date: 20070730
  Transmission Date: 20080115
  Serious: Yes (Life-Threatening, Other)
  Sender: FDA-Public Use
  Company Number: A0664661A

PATIENT
  Age: 37 Year
  Sex: Female

DRUGS (9)
  1. LAMICTAL [Suspect]
     Indication: CLUSTER HEADACHE
     Route: 048
     Dates: start: 20070527
  2. LEXAPRO [Concomitant]
     Route: 048
  3. WELLBUTRIN [Concomitant]
     Route: 048
  4. ZANTAC 150 [Concomitant]
     Dosage: 75MG TWICE PER DAY
     Route: 048
  5. CELEBREX [Concomitant]
     Dosage: 100MG TWICE PER DAY
     Route: 048
  6. MERIDIA [Concomitant]
     Route: 048
  7. MULTIVITAMIN [Concomitant]
     Route: 048
  8. FISH OIL [Concomitant]
     Route: 048
  9. LYRICA [Concomitant]
     Dosage: 200MG TWICE PER DAY
     Route: 048

REACTIONS (3)
  - OROPHARYNGEAL SPASM [None]
  - RASH [None]
  - SWOLLEN TONGUE [None]
